FAERS Safety Report 4901959-6 (Version None)
Quarter: 2006Q1

REPORT INFORMATION
  Report Type: 
  Country: None (occurrence: None)
  Receive Date: 20060203
  Receipt Date: 20060203
  Transmission Date: 20060701
  Serious: Yes (Hospitalization)
  Sender: FDA-Public Use
  Company Number: None

PATIENT
  Age: 74 Year
  Sex: Male
  Weight: 110.5 kg

DRUGS (1)
  1. ENOXAPARIN SODIUM [Suspect]

REACTIONS (1)
  - ECCHYMOSIS [None]
